FAERS Safety Report 7387488-1 (Version None)
Quarter: 2011Q1

REPORT INFORMATION
  Report Type: 
  Country: None (occurrence: None)
  Receive Date: 20110331
  Receipt Date: 20110329
  Transmission Date: 20110831
  Serious: Yes (Other)
  Sender: FDA-Public Use
  Company Number: US-PFIZER INC-2011070379

PATIENT
  Sex: Female
  Weight: 55.78 kg

DRUGS (1)
  1. LYRICA [Suspect]
     Indication: NEURALGIA
     Dosage: 75 MG, 2X/DAY
     Route: 048
     Dates: start: 20110315

REACTIONS (8)
  - SOMNAMBULISM [None]
  - ARTHRALGIA [None]
  - PAIN [None]
  - EUPHORIC MOOD [None]
  - HEADACHE [None]
  - FEELING ABNORMAL [None]
  - ABNORMAL DREAMS [None]
  - FATIGUE [None]
